FAERS Safety Report 5764883-5 (Version None)
Quarter: 2008Q2

REPORT INFORMATION
  Report Type: 
  Country: None (occurrence: None)
  Receive Date: 20080611
  Receipt Date: 20080603
  Transmission Date: 20081010
  Serious: Yes (Death)
  Sender: FDA-Public Use
  Company Number: GB-AVENTIS-200811867EU

PATIENT
  Sex: Female

DRUGS (1)
  1. CLEXANE [Suspect]

REACTIONS (1)
  - DEATH [None]
